FAERS Safety Report 10182746 (Version 1)
Quarter: 2014Q2

REPORT INFORMATION
  Report Type: Spontaneous
  Country: US (occurrence: None)
  Receive Date: 20140519
  Receipt Date: 20140519
  Transmission Date: 20141212
  Serious: Yes (Hospitalization)
  Sender: FDA-Public Use
  Company Number: None

PATIENT
  Age: 86 Year
  Sex: Male
  Weight: 81.8 kg

DRUGS (1)
  1. WARFARIN [Suspect]
     Indication: AORTIC VALVE REPLACEMENT
     Route: 048

REACTIONS (5)
  - International normalised ratio increased [None]
  - Dyspnoea [None]
  - Faeces discoloured [None]
  - Gastrointestinal vascular malformation [None]
  - Gastric haemorrhage [None]
